FAERS Safety Report 8244505-4 (Version None)
Quarter: 2012Q1

REPORT INFORMATION
  Report Type: 
  Country: None (occurrence: None)
  Receive Date: 20120329
  Receipt Date: 20120320
  Transmission Date: 20120608
  Serious: Yes (Hospitalization, Other)
  Sender: FDA-Public Use
  Company Number: IE-ABBOTT-12P-229-0898807-00

PATIENT
  Sex: Female

DRUGS (2)
  1. VIMOVO [Concomitant]
     Indication: PRODUCT USED FOR UNKNOWN INDICATION
  2. HUMIRA [Suspect]
     Indication: PSORIATIC ARTHROPATHY
     Route: 058
     Dates: start: 20111128

REACTIONS (14)
  - FLUID RETENTION [None]
  - HEART RATE INCREASED [None]
  - SWELLING FACE [None]
  - BLOOD CORTISOL DECREASED [None]
  - WEIGHT INCREASED [None]
  - INSOMNIA [None]
  - BLOOD PRESSURE INCREASED [None]
  - HYPERTENSION [None]
  - HAIR GROWTH ABNORMAL [None]
  - ARTHRALGIA [None]
  - NIGHTMARE [None]
  - AMNESIA [None]
  - HEADACHE [None]
  - LOCAL SWELLING [None]
